FAERS Safety Report 21785722 (Version 2)
Quarter: 2022Q4

REPORT INFORMATION
  Report Type: Spontaneous
  Country: PK (occurrence: PK)
  Receive Date: 20221227
  Receipt Date: 20221230
  Transmission Date: 20230113
  Serious: Yes (Hospitalization, Other)
  Sender: FDA-Public Use
  Company Number: None

PATIENT
  Age: 35 Year
  Sex: Male

DRUGS (12)
  1. DOXORUBICIN [Suspect]
     Active Substance: DOXORUBICIN
     Indication: Diffuse large B-cell lymphoma
     Dosage: UNK UNK, CYCLICAL; RCHOP REGIMEN
     Route: 065
  2. DOXORUBICIN [Suspect]
     Active Substance: DOXORUBICIN
     Indication: Gastrointestinal lymphoma
     Dosage: UNK UNK, CYCLICAL; PATIENT RECEIVED THE REMAINING CYCLES OF CHEMOTHERAPY
     Route: 065
  3. PREDNISOLONE [Suspect]
     Active Substance: PREDNISOLONE
     Indication: Diffuse large B-cell lymphoma
     Dosage: UNK, CYCLICAL; RCHOP REGIMEN
     Route: 065
  4. PREDNISOLONE [Suspect]
     Active Substance: PREDNISOLONE
     Indication: Gastrointestinal lymphoma
     Dosage: UNK UNK, CYCLICAL; PATIENT RECEIVED THE REMAINING CYCLES OF CHEMOTHERAPY
     Route: 065
  5. CYCLOPHOSPHAMIDE [Suspect]
     Active Substance: CYCLOPHOSPHAMIDE
     Indication: Diffuse large B-cell lymphoma
     Dosage: UNK UNK, CYCLICAL; RCHOP REGIMEN
     Route: 065
  6. CYCLOPHOSPHAMIDE [Suspect]
     Active Substance: CYCLOPHOSPHAMIDE
     Indication: Gastrointestinal lymphoma
     Dosage: UNK UNK, CYCLICAL; PATIENT RECEIVED THE REMAINING CYCLES OF CHEMOTHERAPY
     Route: 065
  7. RITUXIMAB [Suspect]
     Active Substance: RITUXIMAB
     Indication: Diffuse large B-cell lymphoma
     Dosage: UNK UNK, CYCLICAL; RCHOP REGIMEN
     Route: 065
  8. RITUXIMAB [Suspect]
     Active Substance: RITUXIMAB
     Indication: Gastrointestinal lymphoma
     Dosage: UNK UNK, CYCLICAL; PATIENT RECEIVED THE REMAINING CYCLES OF CHEMOTHERAPY
     Route: 065
  9. VINCRISTINE [Suspect]
     Active Substance: VINCRISTINE
     Indication: Diffuse large B-cell lymphoma
     Dosage: UNK, CYCLICAL; RCHOP REGIMEN
     Route: 065
  10. VINCRISTINE [Suspect]
     Active Substance: VINCRISTINE
     Indication: Gastrointestinal lymphoma
     Dosage: UNK UNK, CYCLICAL; PATIENT RECEIVED THE REMAINING CYCLES OF CHEMOTHERAPY
     Route: 065
  11. ENTECAVIR [Concomitant]
     Active Substance: ENTECAVIR
     Indication: Hepatitis B
     Dosage: UNK
     Route: 065
  12. ENTECAVIR [Concomitant]
     Active Substance: ENTECAVIR
     Indication: Hepatitis B surface antigen positive

REACTIONS (6)
  - Obstruction gastric [Recovered/Resolved]
  - Hyponatraemia [Recovered/Resolved]
  - Metabolic alkalosis [Recovered/Resolved]
  - Gastritis [Recovered/Resolved]
  - Hypokalaemia [Recovered/Resolved]
  - Depressed mood [Unknown]
